FAERS Safety Report 19586850 (Version 3)
Quarter: 2021Q3

REPORT INFORMATION
  Report Type: Report from Study
  Country: None (occurrence: US)
  Receive Date: 20210720
  Receipt Date: 20210910
  Transmission Date: 20211014
  Serious: Yes (Other)
  Sender: FDA-Public Use
  Company Number: US-ABBVIE-21K-163-3996360-00

PATIENT
  Age: 52 Year
  Sex: Female

DRUGS (3)
  1. CYMBALTA [Suspect]
     Active Substance: DULOXETINE HYDROCHLORIDE
     Indication: FIBROMYALGIA
     Route: 065
  2. SKYRIZI [Suspect]
     Active Substance: RISANKIZUMAB-RZAA
     Indication: PSORIASIS
     Route: 058
  3. MODERNA COVID?19 VACCINE [Suspect]
     Active Substance: CX-024414
     Indication: COVID-19 IMMUNISATION
     Route: 030

REACTIONS (12)
  - Post procedural complication [Unknown]
  - Arthrodesis [Recovering/Resolving]
  - Illness [Unknown]
  - Migraine [Recovering/Resolving]
  - Food poisoning [Recovering/Resolving]
  - Fatigue [Recovering/Resolving]
  - Adverse drug reaction [Recovering/Resolving]
  - Diabetes mellitus [Unknown]
  - Fibromyalgia [Unknown]
  - Vaccination complication [Recovered/Resolved]
  - Nausea [Recovering/Resolving]
  - Headache [Recovered/Resolved]

NARRATIVE: CASE EVENT DATE: 202107
